FAERS Safety Report 25980194 (Version 1)
Quarter: 2025Q4

REPORT INFORMATION
  Report Type: Spontaneous
  Country: US (occurrence: None)
  Receive Date: 20251030
  Receipt Date: 20251030
  Transmission Date: 20260118
  Serious: No
  Sender: FDA-CTU
  Company Number: None

PATIENT
  Age: 16 Year
  Sex: Female

DRUGS (10)
  1. CYPROHEPTADINE [Suspect]
     Active Substance: CYPROHEPTADINE
     Indication: Impaired gastric emptying
  2. CYPROHEPTADINE [Suspect]
     Active Substance: CYPROHEPTADINE
     Indication: Gastrointestinal disorder
  3. PENTASA [Concomitant]
     Active Substance: MESALAMINE
  4. PREVACID [Concomitant]
     Active Substance: LANSOPRAZOLE
  5. FAMOTIDINE [Concomitant]
     Active Substance: FAMOTIDINE
  6. GUANFACINE [Concomitant]
     Active Substance: GUANFACINE
  7. CLONIDINE [Concomitant]
     Active Substance: CLONIDINE
  8. VITAMIN D [Concomitant]
     Active Substance: VITAMIN D NOS
  9. CLARITIN [Concomitant]
     Active Substance: LORATADINE
  10. EX-LAX REGULAR STRENGTH STIMULANT LAXATIVE [Concomitant]
     Active Substance: SENNOSIDES

REACTIONS (1)
  - Product dispensing error [None]

NARRATIVE: CASE EVENT DATE: 20251029
